FAERS Safety Report 9041226 (Version 1)
Quarter: 2013Q1

REPORT INFORMATION
  Report Type: Report from Study
  Country: US (occurrence: US)
  Receive Date: 20130129
  Receipt Date: 20130129
  Transmission Date: 20140127
  Serious: No
  Sender: FDA-Public Use
  Company Number: US-ABBOTT-11P-163-0881939-00

PATIENT
  Age: 75 Year
  Sex: Female

DRUGS (16)
  1. HUMIRA 40 MG/0.8 ML PEN [Suspect]
     Indication: CROHN^S DISEASE
     Dosage: INITIAL LOADING DOSE
     Dates: start: 20111202, end: 20111203
  2. HUMIRA 40 MG/0.8 ML PEN [Suspect]
     Dates: start: 20120103, end: 20120117
  3. DIGOXIN [Concomitant]
     Indication: ATRIAL FIBRILLATION
  4. BABY ASPIRIN [Concomitant]
     Indication: ATRIAL FIBRILLATION
     Dosage: ALTERNATES BETWEEN THIS AND PLAVIX QOD
  5. TEKTURNA [Concomitant]
     Indication: BLOOD PRESSURE
  6. ALTACE [Concomitant]
     Indication: BLOOD PRESSURE
  7. ASACOL [Concomitant]
     Indication: CROHN^S DISEASE
  8. XANAX [Concomitant]
     Indication: PRODUCT USED FOR UNKNOWN INDICATION
  9. PLAVIX [Concomitant]
     Indication: PRODUCT USED FOR UNKNOWN INDICATION
     Dosage: ALTERNATES WITH BABY ASA QOD
  10. QUESTRAN [Concomitant]
     Indication: ILL-DEFINED DISORDER
  11. IMMODIUM [Concomitant]
     Indication: DIARRHOEA
  12. MULTIVITAMIN [Concomitant]
     Indication: PRODUCT USED FOR UNKNOWN INDICATION
  13. CALCIUM [Concomitant]
     Indication: PRODUCT USED FOR UNKNOWN INDICATION
  14. VITAMIN D [Concomitant]
     Indication: PRODUCT USED FOR UNKNOWN INDICATION
  15. VITAMIN B [Concomitant]
     Indication: PRODUCT USED FOR UNKNOWN INDICATION
  16. VITAMIN C [Concomitant]
     Indication: PRODUCT USED FOR UNKNOWN INDICATION

REACTIONS (19)
  - Headache [Not Recovered/Not Resolved]
  - Nausea [Not Recovered/Not Resolved]
  - Pain [Not Recovered/Not Resolved]
  - Malaise [Not Recovered/Not Resolved]
  - Rash [Unknown]
  - Blister [Unknown]
  - Herpes zoster [Recovered/Resolved]
  - Herpes virus infection [Unknown]
  - Eye oedema [Unknown]
  - Visual impairment [Unknown]
  - Ear pain [Not Recovered/Not Resolved]
  - Fatigue [Recovering/Resolving]
  - Headache [Recovering/Resolving]
  - Abdominal discomfort [Recovering/Resolving]
  - Urinary tract infection [Unknown]
  - Chest pain [Recovering/Resolving]
  - Headache [Recovering/Resolving]
  - Vomiting [Not Recovered/Not Resolved]
  - Hypersensitivity [Recovering/Resolving]
